FAERS Safety Report 26141871 (Version 1)
Quarter: 2025Q4

REPORT INFORMATION
  Report Type: Report from Study
  Country: US (occurrence: US)
  Receive Date: 20251210
  Receipt Date: 20251210
  Transmission Date: 20260117
  Serious: Yes (Hospitalization, Other)
  Sender: ARGENX BVBA
  Company Number: US-ARGENX-2025-ARGX-US017056

PATIENT

DRUGS (1)
  1. VYVGART HYTRULO [Suspect]
     Active Substance: EFGARTIGIMOD ALFA\HYALURONIDASE-QVFC
     Indication: Chronic inflammatory demyelinating polyradiculoneuropathy
     Dosage: UNK
     Route: 058

REACTIONS (2)
  - Immunosuppression [Unknown]
  - Sepsis [Unknown]

NARRATIVE: CASE EVENT DATE: 20251031
